FAERS Safety Report 6186250-5 (Version None)
Quarter: 2009Q2

REPORT INFORMATION
  Report Type: 
  Country: None (occurrence: None)
  Receive Date: 20090511
  Receipt Date: 20090430
  Transmission Date: 20091009
  Serious: Yes (Other)
  Sender: FDA-Public Use
  Company Number: PHHY2009BR08656

PATIENT
  Age: 6 Year
  Sex: Male

DRUGS (2)
  1. FORASEQ [Suspect]
     Indication: ASTHMA
     Dosage: 12/400 MCG 60/60
  2. FORASEQ [Suspect]
     Dosage: 12/200 MCG 60/60,BID

REACTIONS (3)
  - ASPHYXIA [None]
  - COUGH [None]
  - PIGMENTATION DISORDER [None]
